FAERS Safety Report 20061364 (Version 7)
Quarter: 2022Q2

REPORT INFORMATION
  Report Type: Report from Study
  Country: GB (occurrence: GB)
  Receive Date: 20211112
  Receipt Date: 20220426
  Transmission Date: 20220720
  Serious: Yes (Other)
  Sender: FDA-Public Use
  Company Number: GB-CELLTRION INC.-2020GB035168

PATIENT

DRUGS (203)
  1. TRASTUZUMAB [Suspect]
     Active Substance: TRASTUZUMAB
     Indication: Breast cancer metastatic
     Dosage: 525 MG, TIW, LOADING DOSE
     Route: 042
     Dates: start: 20160510, end: 20160510
  2. TRASTUZUMAB [Suspect]
     Active Substance: TRASTUZUMAB
     Indication: Breast cancer
     Dosage: 525 MG, LOADING DOSE  (ADDITIONAL INFO: ROUTE:042, DF: 230)
     Route: 041
     Dates: start: 20160510, end: 20160510
  3. TRASTUZUMAB [Suspect]
     Active Substance: TRASTUZUMAB
     Dosage: 525 MG, LOADING DOSE  (ADDITIONAL INFO: ROUTE:042, DF: 230)
     Route: 041
     Dates: start: 20160510, end: 20160510
  4. TRASTUZUMAB [Suspect]
     Active Substance: TRASTUZUMAB
     Dosage: 525 MG, LOADING DOSE  (ADDITIONAL INFO: ROUTE:042, DF: 230)
     Route: 041
     Dates: start: 20160510, end: 20160510
  5. TRASTUZUMAB [Suspect]
     Active Substance: TRASTUZUMAB
     Dosage: 525 MG, LOADING DOSE  (ADDITIONAL INFO: ROUTE:042, DF: 230)
     Route: 041
     Dates: start: 20160510, end: 20160510
  6. TRASTUZUMAB [Suspect]
     Active Substance: TRASTUZUMAB
     Dosage: 367.5 MILLIGRAM, 3/WEEK  (ADDITIONAL INFO: ROUTE:042; PHARMACEUTICAL DOSE FORM: 230)
     Route: 042
     Dates: start: 20160920, end: 20170110
  7. TRASTUZUMAB [Suspect]
     Active Substance: TRASTUZUMAB
     Dosage: 367.5 MILLIGRAM, 3/WEEK  (ADDITIONAL INFO: ROUTE:042; PHARMACEUTICAL DOSE FORM: 230)
     Route: 042
     Dates: start: 20160920, end: 20170110
  8. TRASTUZUMAB [Suspect]
     Active Substance: TRASTUZUMAB
     Dosage: 367.5 MILLIGRAM, 3/WEEK  (ADDITIONAL INFO: ROUTE:042; PHARMACEUTICAL DOSE FORM: 230)
     Route: 042
     Dates: start: 20160920, end: 20170110
  9. TRASTUZUMAB [Suspect]
     Active Substance: TRASTUZUMAB
     Dosage: 367.5 MILLIGRAM, 3/WEEK  (ADDITIONAL INFO: ROUTE:042; PHARMACEUTICAL DOSE FORM: 230)
     Route: 042
     Dates: start: 20160920, end: 20170110
  10. TRASTUZUMAB [Suspect]
     Active Substance: TRASTUZUMAB
     Dosage: 367.5 MG, TIW (CUMULATIVE DOSE: 1166 MG)
     Route: 042
     Dates: start: 20160920, end: 20170110
  11. TRASTUZUMAB [Suspect]
     Active Substance: TRASTUZUMAB
     Dosage: 388.5 MILLIGRAM, EVERY 3 WEEK (ADDITIONAL INFO;ROUTE:042; PHARMACEUTICAL DOSE FORM: 230)
     Route: 042
     Dates: start: 20160718, end: 20160830
  12. TRASTUZUMAB [Suspect]
     Active Substance: TRASTUZUMAB
     Dosage: 388.5 MILLIGRAM, EVERY 3 WEEK (ROUTE:042; PHARMACEUTICAL DOSE FORM: 230)
     Route: 042
     Dates: start: 20160718, end: 20160830
  13. TRASTUZUMAB [Suspect]
     Active Substance: TRASTUZUMAB
     Dosage: 388.5 MILLIGRAM, EVERY 3 WEEKS (ROUTE:042; PHARMACEUTICAL DOSE FORM: 230)
     Route: 042
     Dates: start: 20160718, end: 20160830
  14. TRASTUZUMAB [Suspect]
     Active Substance: TRASTUZUMAB
     Dosage: 388.5 MILLIGRAM, EVERY 3 WEEKS (ROUTE:042; PHARMACEUTICAL DOSE FORM: 230)
     Route: 042
     Dates: start: 20160718, end: 20160830
  15. TRASTUZUMAB [Suspect]
     Active Substance: TRASTUZUMAB
     Dosage: 357 MILLIGRAM, EVERY 3 WEEK  (ADDITIONAL INFO: ROUTE:042, DF: 230) (CUMULATIVE DOSE: 525 MG)
     Route: 042
     Dates: start: 20170201, end: 20170426
  16. TRASTUZUMAB [Suspect]
     Active Substance: TRASTUZUMAB
     Dosage: 357 MILLIGRAM, EVERY 3 WEEK  (ADDITIONAL INFO: ROUTE:042, DF: 230)
     Route: 042
     Dates: start: 20170201, end: 20170426
  17. TRASTUZUMAB [Suspect]
     Active Substance: TRASTUZUMAB
     Dosage: 357 MILLIGRAM, EVERY 3 WEEKS (ADDITIONAL INFO: ROUTE:042, DF: 230)
     Route: 042
     Dates: start: 20170201, end: 20170426
  18. TRASTUZUMAB [Suspect]
     Active Substance: TRASTUZUMAB
     Dosage: 357 MILLIGRAM, EVERY 3 WEEKS (ADDITIONAL INFO: ROUTE:042, DF: 230)
     Route: 042
     Dates: start: 20170201, end: 20170426
  19. TRASTUZUMAB [Suspect]
     Active Substance: TRASTUZUMAB
     Dosage: 357 MILLIGRAM, EVERY 3 WEEKS (ADDITIONAL INFO: ROUTE:042, DF: 230)
     Route: 042
     Dates: start: 20170201, end: 20170426
  20. TRASTUZUMAB [Suspect]
     Active Substance: TRASTUZUMAB
     Dosage: 378 MILLIGRAM (ADDITIONAL INFO: ROUTE:042, DF: 230)
     Route: 042
     Dates: start: 20160627, end: 20160627
  21. TRASTUZUMAB [Suspect]
     Active Substance: TRASTUZUMAB
     Dosage: 378 MILLIGRAM (ADDITIONAL INFO: ROUTE:042, DF: 230)
     Route: 042
     Dates: start: 20160627, end: 20160627
  22. TRASTUZUMAB [Suspect]
     Active Substance: TRASTUZUMAB
     Dosage: 378 MILLIGRAM (ADDITIONAL INFO: ROUTE:042, DF: 230)
     Route: 042
     Dates: start: 20160627, end: 20160627
  23. TRASTUZUMAB [Suspect]
     Active Substance: TRASTUZUMAB
     Dosage: 378 MILLIGRAM (ADDITIONAL INFO: ROUTE:042, DF: 230) (CUMULATIVE DOSE: 525 MG)
     Route: 042
     Dates: start: 20160627, end: 20160627
  24. TRASTUZUMAB [Suspect]
     Active Substance: TRASTUZUMAB
     Dosage: 346.5 MILLIGRAM, EVERY 3 WEEKS (ADDITIONAL INFO: ROUTE:042, DF:230)
     Route: 042
     Dates: start: 20170517, end: 20170703
  25. TRASTUZUMAB [Suspect]
     Active Substance: TRASTUZUMAB
     Dosage: 346.5 MILLIGRAM, EVERY 3 WEEKS (ADDITIONAL INFO: ROUTE:042, DF:230)
     Route: 042
     Dates: start: 20170517, end: 20170703
  26. TRASTUZUMAB [Suspect]
     Active Substance: TRASTUZUMAB
     Dosage: 346.5 MILLIGRAM, EVERY 3 WEEKS (ADDITIONAL INFO: ROUTE:042, DF:230)
     Route: 042
     Dates: start: 20170517, end: 20170703
  27. TRASTUZUMAB [Suspect]
     Active Substance: TRASTUZUMAB
     Dosage: 346.5 MILLIGRAM, EVERY 3 WEEKS (ADDITIONAL INFO: ROUTE:042, DF:230)
     Route: 042
     Dates: start: 20170517, end: 20170703
  28. TRASTUZUMAB [Suspect]
     Active Substance: TRASTUZUMAB
     Dosage: 346.5 MILLIGRAM, EVERY 3 WEEK (ADDITIONAL INFO: ROUTE:042, DF:230)
     Route: 042
     Dates: start: 20170517, end: 20170703
  29. TRASTUZUMAB [Suspect]
     Active Substance: TRASTUZUMAB
     Dosage: 388.5 MILLIGRAM EVERY 3 WEEKS (ADDITIONAL INFO: ROUTE:042, DF:230) (CUMULATIVE DOSE: 525 MG)
     Route: 042
     Dates: start: 20160606, end: 20160606
  30. TRASTUZUMAB [Suspect]
     Active Substance: TRASTUZUMAB
     Dosage: 388.5 MILLIGRAM EVERY 3 WEEKS (ADDITIONAL INFO: ROUTE:042, DF:230)
     Route: 042
     Dates: start: 20160606, end: 20160606
  31. TRASTUZUMAB [Suspect]
     Active Substance: TRASTUZUMAB
     Dosage: 388.5 MILLIGRAM EVERY 3 WEEKS (ADDITIONAL INFO: ROUTE:042, DF:230)
     Route: 042
     Dates: start: 20160606, end: 20160606
  32. TRASTUZUMAB [Suspect]
     Active Substance: TRASTUZUMAB
     Dosage: 388.5 MILLIGRAM EVERY 3 WEEKS (ADDITIONAL INFO: ROUTE:042, DF:230)
     Route: 042
     Dates: start: 20160606, end: 20160606
  33. TRASTUZUMAB [Suspect]
     Active Substance: TRASTUZUMAB
     Dosage: 388.5 MILLIGRAM EVERY 3 WEEKS (ADDITIONAL INFO: ROUTE:042, DF:230)
     Route: 042
     Dates: start: 20160606, end: 20160606
  34. TRASTUZUMAB [Suspect]
     Active Substance: TRASTUZUMAB
     Dosage: 336 MILLIGRAM, 3/WEEK (ADDITIONAL INFO: ROUTE:042, DF:230)
     Route: 042
     Dates: start: 20170724, end: 20180904
  35. TRASTUZUMAB [Suspect]
     Active Substance: TRASTUZUMAB
     Dosage: 336 MILLIGRAM, 3/WEEK (ADDITIONAL INFO: ROUTE:042, DF:230)
     Route: 042
     Dates: start: 20170724, end: 20180904
  36. TRASTUZUMAB [Suspect]
     Active Substance: TRASTUZUMAB
     Dosage: 336 MILLIGRAM, 3/WEEK (ADDITIONAL INFO: ROUTE:042, DF:230)
     Route: 042
     Dates: start: 20170724, end: 20180904
  37. TRASTUZUMAB [Suspect]
     Active Substance: TRASTUZUMAB
     Dosage: 336 MILLIGRAM, 3/WEEK (ADDITIONAL INFO: ROUTE:042, DF:230)
     Route: 042
     Dates: start: 20170724, end: 20180904
  38. TRASTUZUMAB [Suspect]
     Active Substance: TRASTUZUMAB
     Dosage: 336 MILLIGRAM, 3/WEEK (ADDITIONAL INFO: ROUTE:042, DF:230)
     Route: 042
     Dates: start: 20170724, end: 20180904
  39. TRASTUZUMAB [Suspect]
     Active Substance: TRASTUZUMAB
     Dosage: TRASTUZUMAB WAS GIVEN WITH PERTUZUMAB
     Dates: start: 20180510
  40. TRASTUZUMAB [Suspect]
     Active Substance: TRASTUZUMAB
     Dosage: 378 MG, TIW
     Route: 042
     Dates: start: 20201013
  41. TRASTUZUMAB [Suspect]
     Active Substance: TRASTUZUMAB
     Dosage: 367.5 MILLIGRAM, 3/WEEK (ADDITIONAL INFO: ROUTE:042) (CUMULATIVE DOSE: 525 MG) (DF: 230)
     Route: 042
     Dates: start: 20160920, end: 20170110
  42. TRASTUZUMAB [Suspect]
     Active Substance: TRASTUZUMAB
     Dosage: 336 MG EVERY 3 WEEKS
     Route: 041
     Dates: start: 20180925, end: 20200922
  43. TRASTUZUMAB [Suspect]
     Active Substance: TRASTUZUMAB
     Dosage: 336 MG, TIW
     Route: 042
     Dates: start: 20170724, end: 20180904
  44. TRASTUZUMAB [Suspect]
     Active Substance: TRASTUZUMAB
     Dosage: 357 MG, TIW
     Route: 042
     Dates: start: 20170201, end: 20170426
  45. TRASTUZUMAB [Suspect]
     Active Substance: TRASTUZUMAB
     Dosage: 346.5 MILLIGRAM, 3/WEEK (ADDITIONAL INFO: ROUTE:042) (CUMULATIVE DOSE: 525 MG)
     Route: 042
     Dates: start: 20170517, end: 20170703
  46. TRASTUZUMAB [Suspect]
     Active Substance: TRASTUZUMAB
     Dosage: 388.5 MILLIGRAM, 3/WEEK (ADDITIONAL INFO: ROUTE:042) (CUMULATIVE DOSE: 525 MG) (DF: 230)
     Route: 042
     Dates: start: 20160718, end: 20160830
  47. TRASTUZUMAB [Suspect]
     Active Substance: TRASTUZUMAB
     Dosage: 336 MILLIGRAM, 3/WEEK (DF: 230) (ADDITIONAL INFO: ROUTE:042) (CUMULATIVE DOSE: 525 MG)
     Route: 042
     Dates: start: 20170724
  48. TRASTUZUMAB [Suspect]
     Active Substance: TRASTUZUMAB
     Dosage: 378 MG, TIW
     Route: 042
     Dates: start: 20160627, end: 20160627
  49. TRASTUZUMAB [Suspect]
     Active Substance: TRASTUZUMAB
     Dosage: 378 MG, EVERY 3 WEEKS (PHARMACEUTICAL DOSE FORM: 293; INFUSION, SOLUTION)
     Route: 041
     Dates: start: 20201013
  50. TRASTUZUMAB [Suspect]
     Active Substance: TRASTUZUMAB
     Dosage: UNK
     Route: 042
     Dates: start: 20180510
  51. TRASTUZUMAB [Suspect]
     Active Substance: TRASTUZUMAB
     Indication: Breast cancer metastatic
     Dosage: 525 MG (LOADING DOSE)
     Route: 042
     Dates: start: 20160510, end: 20160510
  52. TRASTUZUMAB [Suspect]
     Active Substance: TRASTUZUMAB
     Indication: Breast cancer
     Dosage: 525 MG (LOADING DOSE)
     Route: 042
     Dates: start: 20160510, end: 20160510
  53. TRASTUZUMAB [Suspect]
     Active Substance: TRASTUZUMAB
     Dosage: 525 MG,QD (PHARMACEUTICAL DOSE FORM: 293)
     Route: 042
     Dates: start: 20160510, end: 20160510
  54. TRASTUZUMAB [Suspect]
     Active Substance: TRASTUZUMAB
     Dosage: 525 MG 3/WEEK LOADING DOSE (ADDITIONAL INFO; ROUTE: 042; PHARMACEUTICAL DOSAGE FORM:230)
     Route: 042
     Dates: start: 20160510, end: 20160510
  55. TRASTUZUMAB [Suspect]
     Active Substance: TRASTUZUMAB
     Dosage: 388.5 MILLIGRAM (ADDITIONAL INFO; ROUTE: 042; PHARMACEUTICAL DOSAGE FORM: 293)
     Route: 042
     Dates: start: 20160606, end: 20160606
  56. TRASTUZUMAB [Suspect]
     Active Substance: TRASTUZUMAB
     Dosage: 388.5 MG, EVERY 3 WEEKS
     Route: 042
     Dates: start: 20160606, end: 20160606
  57. TRASTUZUMAB [Suspect]
     Active Substance: TRASTUZUMAB
     Dosage: 378 MG, EVERY 3 WEEKS (PHARMACEUTICAL DOSE FORM: 293)
     Route: 042
     Dates: start: 20160627, end: 20160627
  58. TRASTUZUMAB [Suspect]
     Active Substance: TRASTUZUMAB
     Dosage: 378 MG, EVERY 3 WEEKS
     Route: 042
     Dates: start: 20160627, end: 20160627
  59. TRASTUZUMAB [Suspect]
     Active Substance: TRASTUZUMAB
     Dosage: 388.5 MILLIGRAM, EVERY 3 WEEKS (ADDITIONAL INFO; ROUTE: 042; PHARMACEUTICAL DOSAGE FORM: 293)
     Route: 042
     Dates: start: 20160718, end: 20160830
  60. TRASTUZUMAB [Suspect]
     Active Substance: TRASTUZUMAB
     Dosage: 367.5 MILLIGRAM, EVERY 3 WEEKS (ADDITIONAL INFO; ROUTE: 042; PHARMACEUTICAL DOSAGE FORM: 293)
     Route: 042
     Dates: start: 20160920, end: 20170110
  61. TRASTUZUMAB [Suspect]
     Active Substance: TRASTUZUMAB
     Dosage: 357 MG, EVERY 3 WEEKS (ADDITIONAL INFO; ROUTE: 042; PHARMACEUTICAL DOSAGE FORM:293)
     Route: 042
     Dates: start: 20170201, end: 20170426
  62. TRASTUZUMAB [Suspect]
     Active Substance: TRASTUZUMAB
     Dosage: 346.5 EVERY 3 WEEKS (PHARMACEUTICAL DOSE FORM: 293)
     Route: 042
     Dates: start: 20170517, end: 20170703
  63. TRASTUZUMAB [Suspect]
     Active Substance: TRASTUZUMAB
     Dosage: UNK
     Route: 042
     Dates: end: 20180510
  64. TRASTUZUMAB [Suspect]
     Active Substance: TRASTUZUMAB
     Dosage: PHARMACEUTICAL DOSE FORM: 293; INFUSION, SOLUTION
     Route: 042
     Dates: start: 20180510
  65. TRASTUZUMAB [Suspect]
     Active Substance: TRASTUZUMAB
     Dosage: 388.5 MG, EVERY 3 WEEKS (DF:293)
     Route: 042
     Dates: start: 20170724, end: 20180904
  66. TRASTUZUMAB [Suspect]
     Active Substance: TRASTUZUMAB
     Dosage: 336 MG, EVERY 3 WEEKS (DF: 293)
     Route: 042
     Dates: start: 20170724, end: 20180904
  67. TRASTUZUMAB [Suspect]
     Active Substance: TRASTUZUMAB
     Dosage: 336 MG, EVERY 3 WEEKS (PHARMACEUTICAL DOSE FORM: INFUSION, SOLUTION)
     Route: 041
     Dates: start: 20180925, end: 20200922
  68. TRASTUZUMAB [Suspect]
     Active Substance: TRASTUZUMAB
     Dosage: 336 MG EVERY 3 WEEKS
     Route: 041
     Dates: start: 20180925, end: 20200922
  69. TRASTUZUMAB [Suspect]
     Active Substance: TRASTUZUMAB
     Dosage: 336 MG, 3/WEEK (PHARMACEUTICAL DOSE FORM: 293)
     Route: 041
     Dates: start: 20180925, end: 20200922
  70. TRASTUZUMAB [Suspect]
     Active Substance: TRASTUZUMAB
     Dosage: 336 MG EVERY 3 WEEKS
     Route: 041
     Dates: start: 20180925, end: 20200922
  71. TRASTUZUMAB [Suspect]
     Active Substance: TRASTUZUMAB
     Dosage: 378 MG, EVERY 3 WEEKS (PHARMACEUTICAL DOSE FORM: 293; INFUSION, SOLUTION)
     Route: 041
     Dates: start: 20201013
  72. TRASTUZUMAB [Suspect]
     Active Substance: TRASTUZUMAB
     Dosage: 378 MG, EVERY 3 WEEKS
     Route: 041
     Dates: start: 20201013
  73. TRASTUZUMAB [Suspect]
     Active Substance: TRASTUZUMAB
     Dosage: 378 MG EVERY 3 WEEKS
     Route: 041
     Dates: start: 20201013
  74. TRASTUZUMAB [Suspect]
     Active Substance: TRASTUZUMAB
     Dosage: 357 MILLIGRAM, 3 TIMES/WK (CUMULATIVE DOSE: 1817 MG) (DOSE FORM: 293)
     Route: 042
     Dates: start: 20170201, end: 20170426
  75. TRASTUZUMAB [Suspect]
     Active Substance: TRASTUZUMAB
     Dosage: 336 MILLIGRAM, 3 TIMES/WK (CUMULATIVE DOSE: 1817 MG) (DOSE FORM: 293)
     Route: 042
     Dates: start: 20170724, end: 20180904
  76. TRASTUZUMAB [Suspect]
     Active Substance: TRASTUZUMAB
     Dosage: 388.5 MILLIGRAM, 3 TIMES/WEEK (CUMULATIVE DOSE: 1817 MG) (DOSE FORM: 293)
     Route: 042
     Dates: start: 20160718, end: 20160830
  77. TRASTUZUMAB [Suspect]
     Active Substance: TRASTUZUMAB
     Dosage: UNK (CUMULATIVE DOSE: 1817 MG) (DOSE FORM: 293)
     Route: 042
     Dates: start: 20180510
  78. TRASTUZUMAB [Suspect]
     Active Substance: TRASTUZUMAB
     Dosage: 388.5 MILLIGRAM, Q3WK (CUMULATIVE DOSE: 1817 MG) (DOSE FORM: 293)
     Route: 042
     Dates: start: 20160606, end: 20160606
  79. TRASTUZUMAB [Suspect]
     Active Substance: TRASTUZUMAB
     Dosage: 388.5 MILLIGRAM, Q3WK (CUMULATIVE DOSE: 1817 MG) (DOSE FORM: 293)
     Route: 042
     Dates: start: 20160718, end: 20160830
  80. TRASTUZUMAB [Suspect]
     Active Substance: TRASTUZUMAB
     Dosage: 346.5 MILLIGRAM, Q3WK (CUMULATIVE DOSE: 1817 MG) (DOSE FORM: 293)
     Route: 042
     Dates: start: 20170517, end: 20170703
  81. TRASTUZUMAB [Suspect]
     Active Substance: TRASTUZUMAB
     Dosage: 367.5 MILLIGRAM, Q3WK (CUMULATIVE DOSE: 1817 MG) (DOSE FORM: 293)
     Route: 042
     Dates: start: 20160920, end: 20170110
  82. TRASTUZUMAB [Suspect]
     Active Substance: TRASTUZUMAB
     Dosage: 525 MILLIGRAM, Q3WK (CUMULATIVE DOSE: 1817 MG) (DOSE FORM: 293)
     Route: 041
     Dates: start: 20160510, end: 20160510
  83. TRASTUZUMAB [Suspect]
     Active Substance: TRASTUZUMAB
     Dosage: 378 MILLIGRAM, Q3WK (CUMULATIVE DOSE: 1817 MG) (DOSE FORM: 293)
     Route: 042
     Dates: start: 20160627, end: 20160627
  84. TRASTUZUMAB [Suspect]
     Active Substance: TRASTUZUMAB
     Dosage: 378 MILLIGRAM, Q3WK (CUMULATIVE DOSE: 1817 MG) (DOSE FORM: 293)
     Route: 041
     Dates: start: 20201013
  85. TRASTUZUMAB [Suspect]
     Active Substance: TRASTUZUMAB
     Dosage: 336 MILLIGRAM, Q3WK (CUMULATIVE DOSE: 1817 MG) (DOSE FORM: 293)
     Route: 041
     Dates: start: 20180925, end: 20200922
  86. TRASTUZUMAB [Suspect]
     Active Substance: TRASTUZUMAB
     Dosage: 388.5 MILLIGRAM, Q3WK (CUMULATIVE DOSE: 1817 MG) (DOSE FORM: 293)
     Route: 042
     Dates: start: 20170724, end: 20180904
  87. TRASTUZUMAB [Suspect]
     Active Substance: TRASTUZUMAB
     Dosage: 357 MILLIGRAM, Q3WK (CUMULATIVE DOSE: 1817 MG) (DOSE FORM: 293)
     Route: 042
     Dates: start: 20170201, end: 20170426
  88. TRASTUZUMAB [Suspect]
     Active Substance: TRASTUZUMAB
     Dosage: 336 MG, EVERY 3 WEEKS
     Route: 041
     Dates: start: 20180915
  89. TRASTUZUMAB [Suspect]
     Active Substance: TRASTUZUMAB
     Dosage: 336 MG
     Route: 041
     Dates: start: 20200922
  90. TRASTUZUMAB [Suspect]
     Active Substance: TRASTUZUMAB
     Dosage: UNK
     Route: 042
     Dates: start: 20180510
  91. DOCETAXEL [Suspect]
     Active Substance: DOCETAXEL
     Indication: Breast cancer metastatic
     Dosage: 120 MG, EVERY 3 WEEKS
     Route: 042
     Dates: start: 20160511, end: 20160808
  92. DOCETAXEL [Suspect]
     Active Substance: DOCETAXEL
     Indication: Breast cancer
     Dosage: 130 MILLIGRAM, 3/WEEK (ADDITIONAL INFO; ROUTE:042)
     Route: 042
     Dates: start: 20160511, end: 20160808
  93. DOCETAXEL [Suspect]
     Active Substance: DOCETAXEL
     Dosage: 130 MG, EVERY 3 WEEKS
     Route: 042
     Dates: start: 20160511, end: 20160808
  94. DOCETAXEL [Suspect]
     Active Substance: DOCETAXEL
     Dosage: 130 MILLIGRAM, 3/WEEK
     Route: 042
     Dates: start: 20160511, end: 20160808
  95. DOCETAXEL [Suspect]
     Active Substance: DOCETAXEL
     Dosage: 130 MILLIGRAM, 3/WEEK
     Route: 042
     Dates: start: 20160511, end: 20160808
  96. DOCETAXEL [Suspect]
     Active Substance: DOCETAXEL
     Dosage: 120 MILLIGRAM, 3/WEEK (ADDITIONAL INFO; ROUTE: 042, CUMULATIVE DOSE: 3718MG)
     Route: 042
     Dates: start: 20160808, end: 20160830
  97. DOCETAXEL [Suspect]
     Active Substance: DOCETAXEL
     Dosage: 120 MILLIGRAM, 3/WEEK
     Route: 042
     Dates: start: 20160808, end: 20160830
  98. DOCETAXEL [Suspect]
     Active Substance: DOCETAXEL
     Dosage: 120 MILLIGRAM, 3/WEEK
     Route: 042
     Dates: start: 20160808, end: 20160830
  99. DOCETAXEL [Suspect]
     Active Substance: DOCETAXEL
     Dosage: 120 MG, TIW
     Route: 042
     Dates: start: 20160808, end: 20160830
  100. DOCETAXEL [Suspect]
     Active Substance: DOCETAXEL
     Dosage: 360 MILLIGRAM, QWK (CUMULATIVE DOSE 3718 MILLIGRAM)
     Route: 042
     Dates: start: 20160808, end: 20160830
  101. DOCETAXEL [Suspect]
     Active Substance: DOCETAXEL
     Dosage: 120 MG, EVERY 3 WEEKS
     Route: 042
     Dates: start: 20160808, end: 20160830
  102. DOCETAXEL [Suspect]
     Active Substance: DOCETAXEL
     Dosage: 120 MILLIGRAM, 3 TIMES/WK (CUMULATIVE DOSE: 2200 MG)
     Route: 042
     Dates: start: 20160808, end: 20160830
  103. DOCETAXEL [Suspect]
     Active Substance: DOCETAXEL
     Dosage: 390 MILLIGRAM, QWK (CUMULATIVE DOSE: 2200 MG)
     Route: 042
     Dates: start: 20160511, end: 20160808
  104. DOCETAXEL [Suspect]
     Active Substance: DOCETAXEL
     Dosage: 130 MILLIGRAM, 3 TIMES/WK (CUMULATIVE DOSE: 2200 MG)
     Route: 042
     Dates: start: 20160511, end: 20160808
  105. DOCETAXEL [Suspect]
     Active Substance: DOCETAXEL
     Dosage: 120 MILLIGRAM, Q3WK (CUMULATIVE DOSE 2200 MG)
     Route: 042
     Dates: start: 20160808, end: 20160830
  106. DOCETAXEL [Suspect]
     Active Substance: DOCETAXEL
     Dosage: 130 MILLIGRAM, Q3WK (CUMULATIVE DOSE 2200 MG)
     Route: 042
     Dates: start: 20160511, end: 20160808
  107. DOCETAXEL [Suspect]
     Active Substance: DOCETAXEL
     Dosage: UNK
  108. DOCETAXEL [Suspect]
     Active Substance: DOCETAXEL
     Dosage: 130 MILLIGRAM, 3/WEEK (CUMULATIVE DOSE: 3718MG; ADDITIONAL INFO: ROUTE: 042)
     Route: 042
     Dates: start: 20160511, end: 20160808
  109. DOCETAXEL [Suspect]
     Active Substance: DOCETAXEL
     Dosage: 130 MG, QW [PHARMACEUTICAL DOSE FORM: 16]
     Route: 042
     Dates: start: 20160511, end: 20160808
  110. DOCETAXEL [Suspect]
     Active Substance: DOCETAXEL
     Dosage: 120 MG, QW [PHARMACEUTICAL DOSE FORM: 16]
     Route: 042
     Dates: start: 20210808, end: 20210830
  111. DOCETAXEL [Suspect]
     Active Substance: DOCETAXEL
     Dosage: 120 MG, 1/WEEK (ON 30/AUG/2021, SHE RECEIVED MOST RECENT DOSE)
     Route: 042
     Dates: start: 20210808
  112. ANASTROZOLE [Suspect]
     Active Substance: ANASTROZOLE
     Indication: Breast cancer metastatic
     Dosage: 1 MILLIGRAM, DAILY (ADDITIONAL INFO: ROUTE:048)
     Route: 048
     Dates: start: 20170127
  113. ANASTROZOLE [Suspect]
     Active Substance: ANASTROZOLE
     Indication: Breast cancer metastatic
     Dosage: 1 MG, QD (ADDITIONAL INFO: ROUTE:048)
     Route: 048
     Dates: start: 20170127
  114. ANASTROZOLE [Suspect]
     Active Substance: ANASTROZOLE
     Indication: Breast cancer
     Dosage: 1 MILLIGRAM, QD (CUMULATIVE DOSE 196.042)
     Route: 048
     Dates: start: 20170127
  115. ANASTROZOLE [Suspect]
     Active Substance: ANASTROZOLE
     Dosage: UNK
  116. ANASTROZOLE [Suspect]
     Active Substance: ANASTROZOLE
     Dosage: 1 MG, QD
     Route: 048
     Dates: start: 20170127
  117. ANASTROZOLE [Suspect]
     Active Substance: ANASTROZOLE
     Dosage: UNK
  118. NERATINIB [Suspect]
     Active Substance: NERATINIB
     Indication: Breast cancer
     Dosage: 378 MG, TIW
     Route: 042
     Dates: start: 20201013
  119. NERATINIB [Suspect]
     Active Substance: NERATINIB
     Dosage: 336 MG, TIW (CUMULATIVE DOSE: 12832.0 MG)
     Route: 042
     Dates: start: 20180925, end: 20200922
  120. NERATINIB [Suspect]
     Active Substance: NERATINIB
     Dosage: 336 MG EVERY 3 WEEKS
     Route: 042
     Dates: start: 20180925, end: 20200922
  121. NERATINIB [Suspect]
     Active Substance: NERATINIB
     Dosage: 378 MG EVERY 3 WEEKS
     Route: 042
     Dates: start: 20201013
  122. NERATINIB [Suspect]
     Active Substance: NERATINIB
     Dosage: 378 MILLIGRAM, Q3WK ( CUMULATIVE DOSE: 106.469 MG)
     Route: 042
     Dates: start: 20201013
  123. NERATINIB [Suspect]
     Active Substance: NERATINIB
     Dosage: 336 MILLIGRAM, Q3WK (CUMULATIVE DOSE: 12832.0 MG) (CUMULATIVE DOSE: 106.469 MG)
     Route: 042
     Dates: start: 20180925, end: 20200922
  124. NERATINIB [Suspect]
     Active Substance: NERATINIB
     Dosage: 336 MILLIGRAM, Q3WK (CUMULATIVE DOSE: 106.469 MG)
     Route: 042
     Dates: start: 20180925, end: 20200922
  125. NERATINIB [Suspect]
     Active Substance: NERATINIB
     Dosage: 378 MG, TIW
     Route: 042
     Dates: start: 20201013
  126. NERATINIB [Suspect]
     Active Substance: NERATINIB
     Dosage: 336 MG, 1/WEEK
     Route: 042
     Dates: start: 20200925, end: 20200925
  127. NERATINIB [Suspect]
     Active Substance: NERATINIB
     Indication: Breast cancer
     Dosage: 378 MG, EVERY 3 WEEKS
     Route: 042
     Dates: start: 20201013
  128. NERATINIB [Suspect]
     Active Substance: NERATINIB
     Dosage: 336 MG, EVERY 3 WEEKS
     Route: 042
     Dates: start: 20180925, end: 20200925
  129. NERATINIB [Suspect]
     Active Substance: NERATINIB
     Dosage: 378 MG, EVERY WEEK (PHARMACEUTICAL DOSE FORM: 293)
     Route: 042
     Dates: start: 20201013
  130. NERATINIB [Suspect]
     Active Substance: NERATINIB
     Dosage: 336 MG QW  (PHARMACEUTICAL DOSE FORM: 293)
     Route: 042
     Dates: start: 20190925, end: 20200925
  131. PERTUZUMAB [Suspect]
     Active Substance: PERTUZUMAB
     Indication: Breast cancer metastatic
     Dosage: 840 MG  EVERY 3 WEEKS (LOADING DOSE) (ADDITIONAL INFO: ROUTE:042) (CUMULATIVE DOSE: 2640 MG)
     Route: 042
     Dates: start: 20160510, end: 20160510
  132. PERTUZUMAB [Suspect]
     Active Substance: PERTUZUMAB
     Indication: Breast cancer
     Dosage: LOADING DOSE (ADDITIONAL INFO; ROUTE: 042; PHARMACEUTICAL DOSAGE FORM: 230)
     Route: 042
     Dates: start: 20160510, end: 20160510
  133. PERTUZUMAB [Suspect]
     Active Substance: PERTUZUMAB
     Indication: Breast cancer metastatic
     Dosage: 840 MILLIGRAM EVERY 3 WEEKS (LOADING DOSE) (ADDITIONAL INFO: DOSAGE FORM: 230)
     Route: 042
     Dates: start: 20160510, end: 20160510
  134. PERTUZUMAB [Suspect]
     Active Substance: PERTUZUMAB
     Dosage: 420 MILLIGRAM, EVERY 3 WEEKS (ADDITIONAL INFO; ROUTE: 042; PHARMACEUTICAL DOSAGE FORM: 230)
     Route: 042
     Dates: start: 20160606
  135. PERTUZUMAB [Suspect]
     Active Substance: PERTUZUMAB
     Dosage: 420 MG, TIW (3 WEEK) (PHARMACEUTICAL DOSE FORM: 230)
     Route: 042
     Dates: start: 20160606
  136. PERTUZUMAB [Suspect]
     Active Substance: PERTUZUMAB
     Dosage: 420 MILLIGRAM, EVERY 3 WEEKS (DF:230)
     Route: 042
     Dates: start: 20160606
  137. PERTUZUMAB [Suspect]
     Active Substance: PERTUZUMAB
     Dosage: 420 MILLIGRAM, 3/WEEK (DF:230)
     Route: 042
     Dates: start: 20160606
  138. PERTUZUMAB [Suspect]
     Active Substance: PERTUZUMAB
     Dosage: TRASTUZUMAB WAS GIVEN WITH PERTUZUMAB
     Dates: start: 20180510
  139. PERTUZUMAB [Suspect]
     Active Substance: PERTUZUMAB
     Dosage: UNK
  140. PERTUZUMAB [Suspect]
     Active Substance: PERTUZUMAB
     Dosage: UNK
     Route: 065
     Dates: start: 20180510
  141. PERTUZUMAB [Suspect]
     Active Substance: PERTUZUMAB
     Dosage: LOADING DOSE
     Route: 042
     Dates: start: 20160510, end: 20160510
  142. PERTUZUMAB [Suspect]
     Active Substance: PERTUZUMAB
     Dosage: 420 MG EVERY 3 WEEKS
     Route: 042
     Dates: start: 20160606
  143. PERTUZUMAB [Suspect]
     Active Substance: PERTUZUMAB
     Dosage: 420 MILLIGRAM, Q3WK (CUMULATIVE DOSE: 16940.0 MG)
     Route: 042
     Dates: start: 20160606
  144. PERTUZUMAB [Suspect]
     Active Substance: PERTUZUMAB
     Dosage: UNK
     Route: 042
     Dates: start: 20160606
  145. PERTUZUMAB [Suspect]
     Active Substance: PERTUZUMAB
     Dosage: 840 MILLIGRAM, Q3WK (CUMULATIVE DOSE: 34960.0 MG)
     Route: 042
     Dates: start: 20160510, end: 20160510
  146. PERTUZUMAB [Suspect]
     Active Substance: PERTUZUMAB
     Dosage: 420 MILLIGRAM, 3/WEEK
     Route: 042
     Dates: start: 20160606
  147. PERTUZUMAB [Suspect]
     Active Substance: PERTUZUMAB
     Dosage: 840 MG, QW (PHARMACEUTICAL DOSE FORM: 230)
     Route: 042
     Dates: start: 20160510, end: 20160510
  148. PERTUZUMAB [Suspect]
     Active Substance: PERTUZUMAB
     Dosage: 420 MG, QW (PHARMACEUTICAL DOSE FORM: 230)
     Route: 042
     Dates: start: 20160606
  149. ONTRUZANT [Suspect]
     Active Substance: TRASTUZUMAB-DTTB
     Indication: Breast cancer metastatic
     Dosage: 336 MILLIGRAM, Q3WK
     Route: 041
     Dates: start: 20180915
  150. ONTRUZANT [Suspect]
     Active Substance: TRASTUZUMAB-DTTB
     Indication: HER2 positive breast cancer
     Dosage: 336 MILLIGRAM
     Route: 041
     Dates: start: 20200922
  151. ONTRUZANT [Suspect]
     Active Substance: TRASTUZUMAB-DTTB
     Indication: Breast cancer metastatic
     Dosage: 336 MILLIGRAM, Q3WK
     Route: 041
     Dates: start: 20180925
  152. ONTRUZANT [Suspect]
     Active Substance: TRASTUZUMAB-DTTB
     Dosage: 378 MILLIGRAM, Q3WK
     Route: 041
     Dates: start: 20201013
  153. ONTRUZANT [Suspect]
     Active Substance: TRASTUZUMAB-DTTB
     Dosage: 336 MILLIGRAM, Q3WK (CUMULATIVE DOSE: 96.0 MG)
     Route: 041
     Dates: start: 20180925
  154. ONTRUZANT [Suspect]
     Active Substance: TRASTUZUMAB-DTTB
     Dosage: 336 MILLIGRAM, Q3WK (CUMULATIVE DOSE: 256.0 MG)
     Route: 041
     Dates: start: 20180915
  155. MORPHINE SULFATE [Concomitant]
     Active Substance: MORPHINE SULFATE
     Indication: Product used for unknown indication
     Dosage: 60 MILLIGRAM, DAILY (ADDITIONAL INFO: ROUTE:048) (DOSE FORM: 245)
     Route: 048
  156. MORPHINE SULFATE [Concomitant]
     Active Substance: MORPHINE SULFATE
     Dosage: 60 MILLIGRAM, DAILY (ADDITIONAL INFORMATION: DF:245)
     Route: 048
  157. MORPHINE SULFATE [Concomitant]
     Active Substance: MORPHINE SULFATE
     Dosage: 60 MG, QD (DF: 245)
     Route: 048
  158. MORPHINE SULFATE [Concomitant]
     Active Substance: MORPHINE SULFATE
     Dosage: 120 MG, UNK (DF: 245)
     Route: 048
  159. MORPHINE SULFATE [Concomitant]
     Active Substance: MORPHINE SULFATE
     Dosage: 60 MG, EVERY 0.5 DAY (60 MILLIGRAM, DAILY)
     Route: 048
  160. MORPHINE SULFATE [Concomitant]
     Active Substance: MORPHINE SULFATE
     Dosage: 120 MG
     Route: 048
  161. MORPHINE SULFATE [Concomitant]
     Active Substance: MORPHINE SULFATE
     Dosage: 60 MILLIGRAM, DAILY
     Route: 048
  162. MORPHINE SULFATE [Concomitant]
     Active Substance: MORPHINE SULFATE
     Dosage: UNK ; ;
  163. MORPHINE SULFATE [Concomitant]
     Active Substance: MORPHINE SULFATE
     Dosage: 10 MG, DAILY (DF: 245)
     Dates: start: 20161101, end: 20161102
  164. MORPHINE SULFATE [Concomitant]
     Active Substance: MORPHINE SULFATE
     Dosage: 60 MG, 0.5 DAY
     Route: 048
  165. MORPHINE SULFATE [Concomitant]
     Active Substance: MORPHINE SULFATE
     Dosage: 10 MILLIGRAM, QD (CUMULATIVE DOSE: 6989.5835 MG)
     Dates: start: 20161101, end: 20161102
  166. MORPHINE SULFATE [Concomitant]
     Active Substance: MORPHINE SULFATE
     Dosage: 60 MG, QD
     Dates: start: 20161101, end: 20161101
  167. MORPHINE SULFATE [Concomitant]
     Active Substance: MORPHINE SULFATE
     Dosage: 120 MG, QD
  168. MORPHINE SULFATE [Concomitant]
     Active Substance: MORPHINE SULFATE
     Dosage: 20 MG, QD
     Route: 048
  169. DOMPERIDONE [Concomitant]
     Active Substance: DOMPERIDONE
     Indication: Product used for unknown indication
     Dosage: UNK
     Route: 065
     Dates: start: 20191211
  170. DOMPERIDONE [Concomitant]
     Active Substance: DOMPERIDONE
     Dosage: UNK
     Dates: start: 20191211
  171. ACETAMINOPHEN [Concomitant]
     Active Substance: ACETAMINOPHEN
     Indication: Product used for unknown indication
     Dosage: UNK  (ADDITIONAL INFO: ROUTE:048)
     Route: 048
  172. ACETAMINOPHEN [Concomitant]
     Active Substance: ACETAMINOPHEN
     Dosage: UNK
     Route: 048
  173. ACETAMINOPHEN [Concomitant]
     Active Substance: ACETAMINOPHEN
     Dosage: ()
     Route: 048
  174. ACETAMINOPHEN [Concomitant]
     Active Substance: ACETAMINOPHEN
     Dosage: UNK
     Route: 048
  175. PREGABALIN [Concomitant]
     Active Substance: PREGABALIN
     Indication: Product used for unknown indication
     Dosage: UNK
     Route: 065
  176. PREGABALIN [Concomitant]
     Active Substance: PREGABALIN
     Dosage: ()
     Route: 065
  177. IRON [Concomitant]
     Active Substance: IRON
     Indication: Product used for unknown indication
     Dosage: UNK
     Route: 048
     Dates: start: 20190612
  178. IRON [Concomitant]
     Active Substance: IRON
     Dosage: UNK
     Route: 048
  179. CHLORPHENIRAMINE MALEATE [Concomitant]
     Active Substance: CHLORPHENIRAMINE MALEATE
     Indication: Product used for unknown indication
     Dosage: 4 MILLIGRAM (ADDITIONAL INFO: ROUTE:048, DF: 245)
     Route: 048
     Dates: start: 20160627, end: 20160830
  180. CHLORPHENIRAMINE MALEATE [Concomitant]
     Active Substance: CHLORPHENIRAMINE MALEATE
     Dosage: 4 MILLIGRAM
     Route: 048
     Dates: start: 20160627, end: 20160830
  181. CODEINE PHOSPHATE [Concomitant]
     Active Substance: CODEINE PHOSPHATE
     Indication: Product used for unknown indication
     Dosage: 60 MILLIGRAM (ADDITIONAL INFO: ROUTE:048, DF: 245)
     Route: 048
     Dates: start: 20161101, end: 20161101
  182. CODEINE PHOSPHATE [Concomitant]
     Active Substance: CODEINE PHOSPHATE
     Dosage: 60 MG QD
     Route: 048
     Dates: start: 20161101, end: 20161101
  183. CYCLIZINE [Concomitant]
     Active Substance: CYCLIZINE
     Indication: Product used for unknown indication
     Dosage: 50 MILLIGRAM (ADDITIONAL INFO: ROUTE:048, DF:245)
     Route: 048
     Dates: start: 20160627, end: 20160830
  184. CYCLIZINE [Concomitant]
     Active Substance: CYCLIZINE
     Dosage: 50 MILLIGRAM
     Route: 048
     Dates: start: 20160627, end: 20160830
  185. DEXAMETHASONE [Concomitant]
     Active Substance: DEXAMETHASONE
     Indication: Product used for unknown indication
     Dosage: 8 MILLIGRAM (ADDITIONAL INFO: ROUTE:048, DF:245)
     Route: 048
     Dates: start: 20160511, end: 20160830
  186. DEXAMETHASONE [Concomitant]
     Active Substance: DEXAMETHASONE
     Dosage: 8 MILLIGRAM
     Route: 048
     Dates: start: 20160511, end: 20160830
  187. ENOXAPARIN [Concomitant]
     Active Substance: ENOXAPARIN
     Indication: Product used for unknown indication
     Dosage: 40 MILLIGRAM  (ADDITIONAL INFO: ROUTE:058)
     Route: 058
     Dates: start: 20161101, end: 20161101
  188. ENOXAPARIN [Concomitant]
     Active Substance: ENOXAPARIN
     Dosage: 40 MG QD
     Route: 058
     Dates: start: 20161101, end: 20161101
  189. METOCLOPRAMIDE [Concomitant]
     Active Substance: METOCLOPRAMIDE
     Indication: Product used for unknown indication
     Dosage: 10 MILLIGRAM (ADDITIONAL INFO: ROUTE:048, DF:245)
     Route: 048
     Dates: start: 20160511, end: 20160830
  190. METOCLOPRAMIDE [Concomitant]
     Active Substance: METOCLOPRAMIDE
     Dosage: 10 MILLIGRAM
     Route: 048
     Dates: start: 20160511, end: 20160830
  191. MORPHINE [Concomitant]
     Active Substance: MORPHINE
     Indication: Product used for unknown indication
     Dosage: 10 MILLIGRAM, DAILY (ADDITIONAL INFO: ROUTE:048) (DOSE FORM: 245)
     Route: 048
     Dates: start: 20161101, end: 20161102
  192. MORPHINE [Concomitant]
     Active Substance: MORPHINE
     Dosage: 10 MG, DAILY (0.5 DAY)
     Route: 048
     Dates: start: 20161101, end: 20161102
  193. MORPHINE [Concomitant]
     Active Substance: MORPHINE
     Dosage: 10 MILLIGRAM, DAILY
     Route: 048
     Dates: start: 20161101, end: 20161102
  194. MORPHINE [Concomitant]
     Active Substance: MORPHINE
     Dosage: 10 MG(DF: 245) (EVERY 0.5 DAYS)
     Route: 048
     Dates: start: 20161101, end: 20161102
  195. MORPHINE [Concomitant]
     Active Substance: MORPHINE
     Dosage: UNK UNK, DAILY (ADDITIONAL INFO: ROUTE:065)
     Route: 065
  196. MORPHINE [Concomitant]
     Active Substance: MORPHINE
     Dosage: 30 MILLIGRAM, QD
     Route: 048
  197. MORPHINE [Concomitant]
     Active Substance: MORPHINE
     Dosage: UNK
     Route: 065
  198. MORPHINE [Concomitant]
     Active Substance: MORPHINE
     Dosage: 10 MILLIGRAM, QD (CUMULATIVE DOSE: 20 MG)
     Route: 048
     Dates: start: 20161101, end: 20161102
  199. MORPHINE [Concomitant]
     Active Substance: MORPHINE
     Dosage: 30 MILLIGRAM, QD (CUMULATIVE DOSE: 20 MG)
     Route: 048
  200. RAMIPRIL [Concomitant]
     Active Substance: RAMIPRIL
     Indication: Ejection fraction decreased
     Dosage: UNK
     Route: 065
  201. RAMIPRIL [Concomitant]
     Active Substance: RAMIPRIL
     Dosage: 1.25 MG, QD
     Route: 048
     Dates: start: 20190102
  202. RAMIPRIL [Concomitant]
     Active Substance: RAMIPRIL
     Dosage: UNK, QD
     Route: 048
     Dates: start: 20161005
  203. RAMIPRIL [Concomitant]
     Active Substance: RAMIPRIL
     Dosage: UNK; ;
     Route: 048
     Dates: start: 20161005

REACTIONS (10)
  - Haemoglobin decreased [Recovered/Resolved]
  - Haemoglobin decreased [Recovered/Resolved]
  - Neutropenia [Recovered/Resolved]
  - Ejection fraction decreased [Not Recovered/Not Resolved]
  - Ejection fraction decreased [Not Recovered/Not Resolved]
  - Rhinorrhoea [Recovered/Resolved]
  - Lacrimation increased [Recovered/Resolved]
  - Anaemia [Recovered/Resolved]
  - Lower respiratory tract infection [Recovered/Resolved]
  - Off label use [Unknown]

NARRATIVE: CASE EVENT DATE: 20160715
